FAERS Safety Report 9475623 (Version 1)
Quarter: 2013Q3

REPORT INFORMATION
  Report Type: Spontaneous
  Country: US (occurrence: None)
  Receive Date: 20130809
  Receipt Date: 20130809
  Transmission Date: 20140515
  Serious: Yes (Hospitalization)
  Sender: FDA-Public Use
  Company Number: 2013037131

PATIENT
  Sex: Female
  Weight: 220 kg

DRUGS (36)
  1. HIZENTRA (IMMUNOGLOBULIN HUMAN NORMAL) [Suspect]
     Dosage: 1X/WEEK, GM/20 ML; VIA INFUSION PUMP, NO MORE THAN 4 SITES SIMULTANEOUSLY SUBCUTANEOUS
     Route: 058
     Dates: start: 20130510
  2. CETIRIZINE (CETIRIZINE) [Concomitant]
  3. CITALOPRAM (CITALOPRAM) [Concomitant]
  4. ACTEMRA (ALL OTHER THERAPEUTIC PRODUCTS) [Concomitant]
  5. ACYCLOVIR (ACICLOVIR) (ACICLOVIR) [Concomitant]
  6. ADVAIR DISKUS (SERETIDE /01420901/) [Concomitant]
  7. ALENDRONATE (ALENDRONATE) [Concomitant]
  8. AMITRIPTYLINE (AMITRIPTYLINE) [Concomitant]
  9. BUPROPION SR  (BUPROPIO) [Concomitant]
  10. BYSTOLIC (NEBIVOLOL) [Concomitant]
  11. COMBIVENT (COMBIVENT /01261001/) [Concomitant]
  12. CYCLOBENZAPRINE (CYCLOLOBENZAPRINE) [Concomitant]
  13. FLUTICASONE (FLUTICASONE) [Concomitant]
  14. GABEPENTIN (GABEPENTIN) [Concomitant]
  15. GLIMEPIRIDE (GLIMEPIRIDE) [Concomitant]
  16. HYDROXYCHLOROQUUNE (HYDROXYCHLOROQUINE) [Concomitant]
  17. IPRATROPIUM ALBUTEROL (SALBUTAMOL W/IPRATROPIUM) [Concomitant]
  18. MELOXICAM (MELOXICAM) [Concomitant]
  19. MONTELUKAST [Concomitant]
  20. NIASPAN ER (NICOTINIC ACID) [Concomitant]
  21. OMEGA 3 (FISH OIL) [Concomitant]
  22. ONDANSETRON (ONDANSETRON) [Concomitant]
  23. PERCOCET (OXYCOCET) [Concomitant]
  24. PREDNISONE (PREDNISONE) [Concomitant]
  25. PRENATAL (PRENATAL /00231801/) [Concomitant]
  26. PYRIDOSITGMINE BROMIDE (PYRIDOSTIGMINE) [Concomitant]
  27. SAVELLA (MILNACIPRAN) [Concomitant]
  28. THEOPHYLLINE ER (THEOPHYLLINE) [Concomitant]
  29. ULTRAM ER (TRAMADOL HYDROCHLORIDE) [Concomitant]
  30. VESOCARE (SOLIFENACIN) [Concomitant]
  31. VITAMIN D2 (EGOCALCIFEROL) [Concomitant]
  32. ZETIA (EZETIMIBE) [Concomitant]
  33. OMEPRAZOLE DR (OMEPRAZOLE) [Concomitant]
  34. LOSARTAN (LOSARTAN) [Concomitant]
  35. FOLBIC (ALL OTHER THEARPEUTIC PRODUCTS) [Concomitant]
  36. ESTRADIOL (ESTRADIOL) (GEL) [Concomitant]

REACTIONS (13)
  - Plantar fasciitis [None]
  - Exostosis [None]
  - Fall [None]
  - Dyspnoea [None]
  - Deep vein thrombosis [None]
  - Feeling abnormal [None]
  - Pain in extremity [None]
  - Chills [None]
  - Fatigue [None]
  - Fatigue [None]
  - Pain [None]
  - Infusion site bruising [None]
  - Infusion site irritation [None]
